FAERS Safety Report 10456205 (Version 1)
Quarter: 2014Q3

REPORT INFORMATION
  Report Type: Spontaneous
  Country: US (occurrence: None)
  Receive Date: 20140829
  Receipt Date: 20140829
  Transmission Date: 20150326
  Serious: No
  Sender: FDA-Public Use
  Company Number: JHP201400142

PATIENT
  Age: 53 Year
  Sex: Female

DRUGS (2)
  1. DEPO-ESTRADIOL [Suspect]
     Active Substance: ESTRADIOL CYPIONATE
     Indication: HORMONE REPLACEMENT THERAPY
     Dosage: 3 MG EVERY 3 WEEKS, INTRAMUSCULAR)
     Route: 030
  2. DELESTROGEN [Suspect]
     Active Substance: ESTRADIOL VALERATE
     Indication: HORMONE REPLACEMENT THERAPY
     Dosage: 10 MG EVERY 3 WEEKS, INTRAMUSCULAR
     Route: 030
     Dates: start: 201307

REACTIONS (5)
  - Pruritus generalised [None]
  - Mood swings [None]
  - Injection site pruritus [None]
  - Drug ineffective [None]
  - Off label use [None]

NARRATIVE: CASE EVENT DATE: 201307
